FAERS Safety Report 15624556 (Version 2)
Quarter: 2019Q1

REPORT INFORMATION
  Report Type: Report from Study
  Country: US (occurrence: US)
  Receive Date: 20181116
  Receipt Date: 20190204
  Transmission Date: 20190417
  Serious: Yes (Other)
  Sender: FDA-Public Use
  Company Number: US-ROCHE-2214013

PATIENT

DRUGS (11)
  1. VEMURAFENIB. [Suspect]
     Active Substance: VEMURAFENIB
     Indication: METASTASES TO CENTRAL NERVOUS SYSTEM
  2. COBIMETINIB. [Suspect]
     Active Substance: COBIMETINIB
     Indication: METASTATIC MALIGNANT MELANOMA
     Route: 065
  3. TRAMETINIB [Suspect]
     Active Substance: TRAMETINIB
     Indication: METASTATIC MALIGNANT MELANOMA
     Route: 065
  4. ENCORAFENIB [Suspect]
     Active Substance: ENCORAFENIB
     Indication: METASTATIC MALIGNANT MELANOMA
     Route: 065
  5. DABRAFENIB [Suspect]
     Active Substance: DABRAFENIB
     Indication: METASTATIC MALIGNANT MELANOMA
     Route: 065
  6. ENCORAFENIB [Suspect]
     Active Substance: ENCORAFENIB
     Indication: METASTASES TO CENTRAL NERVOUS SYSTEM
  7. BINIMETINIB [Suspect]
     Active Substance: BINIMETINIB
     Indication: METASTASES TO CENTRAL NERVOUS SYSTEM
     Route: 065
  8. DABRAFENIB [Suspect]
     Active Substance: DABRAFENIB
     Indication: METASTASES TO CENTRAL NERVOUS SYSTEM
  9. VEMURAFENIB. [Suspect]
     Active Substance: VEMURAFENIB
     Indication: METASTATIC MALIGNANT MELANOMA
     Route: 065
  10. COBIMETINIB. [Suspect]
     Active Substance: COBIMETINIB
     Indication: METASTASES TO CENTRAL NERVOUS SYSTEM
  11. TRAMETINIB [Suspect]
     Active Substance: TRAMETINIB
     Indication: METASTASES TO CENTRAL NERVOUS SYSTEM

REACTIONS (18)
  - Infection [Unknown]
  - Diarrhoea [Unknown]
  - Palpitations [Unknown]
  - Hypertension [Unknown]
  - Pyrexia [Unknown]
  - Thrombosis [Unknown]
  - Rash [Unknown]
  - Blood creatine phosphokinase increased [Unknown]
  - Nausea [Unknown]
  - Dizziness [Unknown]
  - Central nervous system haemorrhage [Unknown]
  - Myocardial infarction [Unknown]
  - Myositis [Unknown]
  - Fatigue [Unknown]
  - Eye disorder [Unknown]
  - Liver function test abnormal [Unknown]
  - Hepatitis [Unknown]
  - Alopecia [Unknown]
